FAERS Safety Report 22589164 (Version 1)
Quarter: 2023Q2

REPORT INFORMATION
  Report Type: Spontaneous
  Country: US (occurrence: None)
  Receive Date: 20230609
  Receipt Date: 20230609
  Transmission Date: 20230722
  Serious: Yes (Other)
  Sender: FDA-Public Use
  Company Number: None

PATIENT
  Age: 67 Year
  Sex: Male

DRUGS (1)
  1. PRALUENT [Suspect]
     Active Substance: ALIROCUMAB
     Indication: Hyperlipidaemia
     Dosage: OTHER FREQUENCY : EVERY 2 WEEKS;?
     Route: 058
     Dates: start: 20221001, end: 20230517

REACTIONS (6)
  - Nausea [None]
  - Abdominal pain upper [None]
  - Mast cell activation syndrome [None]
  - Blood pressure increased [None]
  - Muscle twitching [None]
  - Neck pain [None]

NARRATIVE: CASE EVENT DATE: 20230113
